FAERS Safety Report 6340172-5 (Version None)
Quarter: 2009Q3

REPORT INFORMATION
  Report Type: 
  Country: None (occurrence: None)
  Receive Date: 20090902
  Receipt Date: 20090819
  Transmission Date: 20100115
  Serious: Yes (Hospitalization)
  Sender: FDA-Public Use
  Company Number: MOZO-1000241

PATIENT

DRUGS (5)
  1. MOZOBIL [Suspect]
     Indication: HAEMATOPOIETIC STEM CELL MOBILISATION
  2. G-CSF (GRANULOCYTE COLONY STIMULATING FACTOR) [Concomitant]
  3. LEUKINE [Concomitant]
  4. ERYTHROPOIETIN (ERYTHROPOIETIN) [Concomitant]
  5. CHEMOTHERAPEUTICS NOS [Concomitant]

REACTIONS (6)
  - BACTERIAL SEPSIS [None]
  - CYTOMEGALOVIRUS INFECTION [None]
  - LEUKOPENIA [None]
  - SPLENOMEGALY [None]
  - THROMBOCYTOPENIA [None]
  - THROMBOTIC MICROANGIOPATHY [None]
